FAERS Safety Report 9316250 (Version 3)
Quarter: 2013Q3

REPORT INFORMATION
  Report Type: Spontaneous
  Country: FR (occurrence: FR)
  Receive Date: 20130530
  Receipt Date: 20130812
  Transmission Date: 20140515
  Serious: Yes (Hospitalization)
  Sender: FDA-Public Use
  Company Number: FR-ROCHE-1229957

PATIENT
  Age: 71 Year
  Sex: Male

DRUGS (8)
  1. ROCEPHINE [Suspect]
     Indication: PRODUCT USED FOR UNKNOWN INDICATION
     Route: 042
     Dates: start: 20130326, end: 20130411
  2. INVANZ [Suspect]
     Indication: PRODUCT USED FOR UNKNOWN INDICATION
     Dosage: 1G
     Route: 042
     Dates: start: 20130412, end: 20130422
  3. EXACYL [Concomitant]
     Dosage: 1G/10 ML
     Route: 048
  4. INEXIUM [Concomitant]
     Dosage: 20 MG
     Route: 048
  5. SPECIAFOLDINE [Concomitant]
     Dosage: 5 MG
     Route: 048
  6. SEROPRAM (FRANCE) [Concomitant]
     Dosage: 20 MG
     Route: 048
  7. CARBOPLATIN [Concomitant]
  8. GEMZAR [Concomitant]

REACTIONS (2)
  - Renal failure acute [Unknown]
  - Confusional state [Recovered/Resolved]
